FAERS Safety Report 6771936-1 (Version None)
Quarter: 2010Q2

REPORT INFORMATION
  Report Type: 
  Country: None (occurrence: None)
  Receive Date: 20100616
  Receipt Date: 20100609
  Transmission Date: 20101027
  Serious: Yes (Hospitalization)
  Sender: FDA-Public Use
  Company Number: US-JNJFOC-20100603314

PATIENT
  Sex: Male
  Weight: 81.65 kg

DRUGS (10)
  1. DURAGESIC-100 [Suspect]
     Indication: OSTEOPOROSIS
     Route: 062
  2. DURAGESIC-100 [Suspect]
     Indication: OSTEOPENIA
     Route: 062
  3. FENTANYL CITRATE [Suspect]
     Indication: OSTEOPOROSIS
     Route: 062
  4. FENTANYL CITRATE [Suspect]
     Indication: OSTEOPENIA
     Route: 062
  5. FENTANYL CITRATE [Suspect]
     Route: 062
  6. FENTANYL CITRATE [Suspect]
     Route: 062
  7. OXYCODONE [Concomitant]
     Indication: BREAKTHROUGH PAIN
     Route: 048
  8. CALCIUM CARBONATE [Concomitant]
     Indication: OSTEOPOROSIS
     Route: 048
  9. VITAMIN D [Concomitant]
     Indication: OSTEOPOROSIS
     Route: 048
  10. PROZAC [Concomitant]
     Route: 048

REACTIONS (7)
  - BONE DISORDER [None]
  - DEPRESSED MOOD [None]
  - DRUG EFFECT DECREASED [None]
  - EUPHORIC MOOD [None]
  - HIP SURGERY [None]
  - PRODUCT QUALITY ISSUE [None]
  - TOOTH LOSS [None]
